FAERS Safety Report 21952475 (Version 1)
Quarter: 2023Q1

REPORT INFORMATION
  Report Type: Spontaneous
  Country: US (occurrence: US)
  Receive Date: 20230203
  Receipt Date: 20230203
  Transmission Date: 20230417
  Serious: Yes (Death, Other)
  Sender: FDA-Public Use
  Company Number: US-002147023-NVSC2023US024486

PATIENT
  Age: 38 Year
  Sex: Female

DRUGS (1)
  1. BUPROPION [Suspect]
     Active Substance: BUPROPION
     Indication: Product used for unknown indication
     Route: 065

REACTIONS (13)
  - Toxicity to various agents [Fatal]
  - Brain death [Fatal]
  - Bradycardia [Unknown]
  - Ventricular arrhythmia [Unknown]
  - Electrocardiogram QT prolonged [Unknown]
  - Myocardial injury [Unknown]
  - Respiratory depression [Unknown]
  - Coma [Unknown]
  - Seizure [Unknown]
  - Cardiac arrest [Unknown]
  - Bradypnoea [Unknown]
  - Hypotension [Unknown]
  - Metabolic acidosis [Unknown]
